FAERS Safety Report 9747631 (Version 1)
Quarter: 2013Q4

REPORT INFORMATION
  Report Type: Spontaneous
  Country: US (occurrence: None)
  Receive Date: 20131211
  Receipt Date: 20131211
  Transmission Date: 20140711
  Serious: No
  Sender: FDA-Public Use
  Company Number: None

PATIENT
  Age: 78 Year
  Sex: Female
  Weight: 71.67 kg

DRUGS (7)
  1. AMLODIPINE [Suspect]
     Indication: HYPERTENSION
     Dosage: 10 MG. 1 PILL A DAY ONCE A DAY BY MOUTH
     Route: 048
     Dates: start: 2012
  2. ATENOLOL [Concomitant]
  3. HYDROCHLOROTHIAZIDE [Concomitant]
  4. LIPITOR [Concomitant]
  5. AMLODIPINE [Concomitant]
  6. BABY ASPIRIN [Concomitant]
  7. CENTRUM SILVER [Concomitant]

REACTIONS (4)
  - Alopecia [None]
  - Drug intolerance [None]
  - Product taste abnormal [None]
  - Product substitution issue [None]
